FAERS Safety Report 16870219 (Version 1)
Quarter: 2019Q3

REPORT INFORMATION
  Report Type: Spontaneous
  Country: GB (occurrence: GB)
  Receive Date: 20190930
  Receipt Date: 20190930
  Transmission Date: 20191005
  Serious: Yes (Other)
  Sender: FDA-Public Use
  Company Number: PHHY2019GB225714

PATIENT

DRUGS (1)
  1. CARBAMAZEPINE. [Suspect]
     Active Substance: CARBAMAZEPINE
     Indication: PRODUCT USED FOR UNKNOWN INDICATION
     Dosage: UNK
     Route: 065

REACTIONS (7)
  - Pericardial effusion [Unknown]
  - Rash [Unknown]
  - Skin ulcer [Unknown]
  - Pleural effusion [Recovered/Resolved]
  - Lupus-like syndrome [Unknown]
  - Lymphadenopathy [Unknown]
  - Dyspnoea [Unknown]
